FAERS Safety Report 6268285-7 (Version None)
Quarter: 2009Q3

REPORT INFORMATION
  Report Type: 
  Country: None (occurrence: None)
  Receive Date: 20090713
  Receipt Date: 20090713
  Transmission Date: 20100115
  Serious: Yes (Other)
  Sender: FDA-Public Use
  Company Number: None

PATIENT
  Sex: Male
  Weight: 106.5953 kg

DRUGS (2)
  1. PROAIR HFA [Suspect]
     Indication: ASTHMA
     Dosage: 180MCH 4 OR 5 TIMES DAILY INHAL
     Route: 055
     Dates: start: 20090201, end: 20090710
  2. PROAIR HFA [Suspect]

REACTIONS (4)
  - DRUG EFFECT DECREASED [None]
  - HEADACHE [None]
  - NAUSEA [None]
  - PRODUCT QUALITY ISSUE [None]
